FAERS Safety Report 25907555 (Version 1)
Quarter: 2025Q4

REPORT INFORMATION
  Report Type: Spontaneous
  Country: GB (occurrence: GB)
  Receive Date: 20251010
  Receipt Date: 20251010
  Transmission Date: 20260118
  Serious: Yes (Other)
  Sender: RANBAXY
  Company Number: GB-SUN PHARMACEUTICAL INDUSTRIES LTD-2025RR-530087

PATIENT
  Sex: Female
  Weight: 64 kg

DRUGS (1)
  1. FLUCONAZOLE [Suspect]
     Active Substance: FLUCONAZOLE
     Indication: Product used for unknown indication
     Dosage: 150 MILLIGRAM, WEEKLY, 150MG X3 WEEKLY
     Route: 065

REACTIONS (2)
  - Vaginal haemorrhage [Recovered/Resolved]
  - Discharge [Recovered/Resolved]
